FAERS Safety Report 8088579-2 (Version None)
Quarter: 2012Q1

REPORT INFORMATION
  Report Type: 
  Country: None (occurrence: None)
  Receive Date: 20120128
  Receipt Date: 20110408
  Transmission Date: 20120608
  Serious: No
  Sender: FDA-Public Use
  Company Number: US-ABBOTT-11P-163-0717560-00

PATIENT
  Sex: Female
  Weight: 44.946 kg

DRUGS (3)
  1. PERCOCET [Concomitant]
     Indication: PAIN
  2. LIALDA [Concomitant]
     Indication: CROHN'S DISEASE
  3. HUMIRA [Suspect]
     Indication: CROHN'S DISEASE
     Dates: start: 20110331, end: 20110331

REACTIONS (2)
  - PAIN [None]
  - HEADACHE [None]
